FAERS Safety Report 7309125-4 (Version None)
Quarter: 2011Q1

REPORT INFORMATION
  Report Type: 
  Country: None (occurrence: None)
  Receive Date: 20110223
  Receipt Date: 20110208
  Transmission Date: 20110831
  Serious: Yes (Other)
  Sender: FDA-Public Use
  Company Number: PHHY2011CZ13722

PATIENT
  Age: 34 Year
  Sex: Male

DRUGS (4)
  1. INDOMETHACIN [Concomitant]
  2. CIPROFLOXACIN HCL [Concomitant]
     Dosage: 1 G, UNK
  3. AZITHROMYCIN [Suspect]
     Indication: CHLAMYDIAL INFECTION
     Dosage: 1 DF, QD
     Route: 048
  4. CLARITHROMYCIN [Concomitant]
     Dosage: 1 G, QD

REACTIONS (11)
  - PROSTATE INFECTION [None]
  - PARAESTHESIA OF GENITAL MALE [None]
  - LIBIDO DECREASED [None]
  - ERECTILE DYSFUNCTION [None]
  - DRUG INEFFECTIVE [None]
  - TERATOSPERMIA [None]
  - AZOOSPERMIA [None]
  - ASTHENOSPERMIA [None]
  - PAINFUL ERECTION [None]
  - PAIN [None]
  - EJACULATION DISORDER [None]
